FAERS Safety Report 18574432 (Version 1)
Quarter: 2020Q4

REPORT INFORMATION
  Report Type: Spontaneous
  Country: US (occurrence: US)
  Receive Date: 20201203
  Receipt Date: 20201203
  Transmission Date: 20210114
  Serious: Yes (Hospitalization, Other)
  Sender: FDA-Public Use
  Company Number: US-SA-2020SA347078

PATIENT

DRUGS (1)
  1. RENVELA [Suspect]
     Active Substance: SEVELAMER CARBONATE
     Dosage: 800 MG, BID
     Route: 065
     Dates: end: 20170517

REACTIONS (13)
  - Sleep apnoea syndrome [Recovering/Resolving]
  - Gastrointestinal haemorrhage [Recovering/Resolving]
  - Gastritis erosive [Recovering/Resolving]
  - Hypotension [Recovering/Resolving]
  - Ill-defined disorder [Recovering/Resolving]
  - Gastritis bacterial [Recovering/Resolving]
  - Deep vein thrombosis [Recovering/Resolving]
  - Obesity [Recovering/Resolving]
  - Chest pain [Recovering/Resolving]
  - Rheumatoid arthritis [Recovering/Resolving]
  - Nausea [Recovering/Resolving]
  - Vomiting [Recovering/Resolving]
  - Oesophagitis [Recovering/Resolving]

NARRATIVE: CASE EVENT DATE: 20170517
